FAERS Safety Report 4953421-2 (Version None)
Quarter: 2006Q1

REPORT INFORMATION
  Report Type: 
  Country: None (occurrence: None)
  Receive Date: 20060131
  Receipt Date: 20050718
  Transmission Date: 20060701
  Serious: Yes (Hospitalization)
  Sender: FDA-Public Use
  Company Number: 8011117

PATIENT
  Age: 69 Year
  Sex: Female

DRUGS (5)
  1. KEPPRA [Suspect]
     Indication: IRRITABLE BOWEL SYNDROME
     Dosage: 250 MG /D PO
     Route: 048
     Dates: start: 20050601, end: 20050705
  2. KEPPRA [Suspect]
     Indication: NERVE INJURY
     Dosage: 250 MG /D PO
     Route: 048
     Dates: start: 20050601, end: 20050705
  3. ATIVAN [Concomitant]
  4. LANSOPRAZOLE [Concomitant]
  5. ANTIHYPERTENSIVE [Concomitant]

REACTIONS (1)
  - PANCREATITIS [None]
